FAERS Safety Report 7460697-9 (Version None)
Quarter: 2011Q2

REPORT INFORMATION
  Report Type: 
  Country: None (occurrence: None)
  Receive Date: 20110505
  Receipt Date: 20110429
  Transmission Date: 20111010
  Serious: Yes (Other)
  Sender: FDA-Public Use
  Company Number: BR-US-EMD SERONO, INC.-7054972

PATIENT
  Sex: Female

DRUGS (8)
  1. ACETAMINOPHEN [Concomitant]
  2. RETEMIC [Concomitant]
  3. REBIF [Suspect]
     Indication: RELAPSING-REMITTING MULTIPLE SCLEROSIS
     Dates: start: 20100901, end: 20110415
  4. ADALAT [Concomitant]
  5. CLORANA [Concomitant]
  6. FLUOXETINE [Concomitant]
  7. CAPTOPRIL [Concomitant]
  8. NPH INSULIN [Concomitant]

REACTIONS (3)
  - PARKINSON'S DISEASE [None]
  - FALL [None]
  - LIVER DISORDER [None]
